FAERS Safety Report 8884071 (Version 1)
Quarter: 2012Q4

REPORT INFORMATION
  Report Type: 
  Country: US (occurrence: US)
  Receive Date: 20121102
  Receipt Date: 20121102
  Transmission Date: 20130627
  Serious: No
  Sender: FDA-Public Use
  Company Number: US-ASTRAZENECA-2012SE27978

PATIENT
  Age: 66 Year
  Sex: Female
  Weight: 67.1 kg

DRUGS (3)
  1. CRESTOR [Suspect]
     Indication: BLOOD CHOLESTEROL INCREASED
     Route: 048
  2. NIACIN [Concomitant]
  3. OTC MEDICATIONS [Concomitant]

REACTIONS (1)
  - Low density lipoprotein decreased [Unknown]
